FAERS Safety Report 4588873-3 (Version None)
Quarter: 2005Q1

REPORT INFORMATION
  Report Type: 
  Country: None (occurrence: None)
  Receive Date: 20050222
  Receipt Date: 20050218
  Transmission Date: 20050727
  Serious: Yes (Hospitalization)
  Sender: FDA-Public Use
  Company Number: BE-GLAXOSMITHKLINE-B0372410A

PATIENT
  Age: 27 Year
  Sex: Male

DRUGS (2)
  1. ZINNAT [Suspect]
     Dosage: 500MG TWICE PER DAY
     Route: 048
     Dates: start: 20050104, end: 20050114
  2. METHADONE HCL [Suspect]
     Dosage: 20MG PER DAY
     Route: 048

REACTIONS (4)
  - GINGIVAL SWELLING [None]
  - HYPERSENSITIVITY [None]
  - PRURITUS [None]
  - SWELLING FACE [None]
